FAERS Safety Report 24547154 (Version 1)
Quarter: 2024Q4

REPORT INFORMATION
  Report Type: Spontaneous
  Country: US (occurrence: US)
  Receive Date: 20241025
  Receipt Date: 20241025
  Transmission Date: 20250115
  Serious: Yes (Death, Hospitalization)
  Sender: TOLMAR
  Company Number: US-TOLMAR, INC.-24US053478

PATIENT
  Sex: Male

DRUGS (4)
  1. ELIGARD [Suspect]
     Active Substance: LEUPROLIDE ACETATE
     Indication: Prostate cancer metastatic
     Dosage: UNK
  2. ELIGARD [Suspect]
     Active Substance: LEUPROLIDE ACETATE
     Indication: Prostate cancer metastatic
     Dosage: UNK
  3. CARBOPLATIN [Concomitant]
     Active Substance: CARBOPLATIN
     Indication: Product used for unknown indication
  4. ETOPOSIDE [Concomitant]
     Active Substance: ETOPOSIDE
     Indication: Product used for unknown indication

REACTIONS (14)
  - Death [Fatal]
  - Lymphadenopathy [Unknown]
  - Compression fracture [Unknown]
  - Cervical vertebral fracture [Unknown]
  - Fall [Unknown]
  - Spinal compression fracture [Unknown]
  - Large intestinal obstruction [Unknown]
  - Acute kidney injury [Not Recovered/Not Resolved]
  - Intestinal obstruction [Unknown]
  - Mental status changes [Not Recovered/Not Resolved]
  - Metastases to bone [Unknown]
  - Metastases to liver [Unknown]
  - Depressed level of consciousness [Unknown]
  - Intestinal metastasis [Unknown]
